FAERS Safety Report 26013559 (Version 1)
Quarter: 2025Q4

REPORT INFORMATION
  Report Type: Spontaneous
  Country: US (occurrence: None)
  Receive Date: 20251107
  Receipt Date: 20251107
  Transmission Date: 20260117
  Serious: No
  Sender: FDA-CTU
  Company Number: None

PATIENT
  Age: 24 Year
  Sex: Male

DRUGS (3)
  1. FINASTERIDE [Suspect]
     Active Substance: FINASTERIDE
  2. BUPROPION [Concomitant]
     Active Substance: BUPROPION
  3. MINOXIDIL [Concomitant]
     Active Substance: MINOXIDIL

REACTIONS (2)
  - Loss of libido [None]
  - Erectile dysfunction [None]
